FAERS Safety Report 16618787 (Version 1)
Quarter: 2019Q3

REPORT INFORMATION
  Report Type: Spontaneous
  Country: FR (occurrence: FR)
  Receive Date: 20190723
  Receipt Date: 20190723
  Transmission Date: 20191004
  Serious: Yes (Other)
  Sender: FDA-Public Use
  Company Number: FR-BAYER-2019-134419

PATIENT
  Age: 41 Year
  Sex: Female
  Weight: 63 kg

DRUGS (3)
  1. ALEVE [Suspect]
     Active Substance: NAPROXEN SODIUM
     Indication: POLYARTHRITIS
     Dosage: 1000 MG, UNK
     Route: 048
     Dates: start: 20190531
  2. PREGABALINE [Suspect]
     Active Substance: PREGABALIN
     Indication: POLYARTHRITIS
     Dosage: 150 MG, UNK
     Route: 048
     Dates: start: 20190531
  3. TRAMADOL HYDROCHLORIDE. [Suspect]
     Active Substance: TRAMADOL HYDROCHLORIDE
     Indication: POLYARTHRITIS
     Dosage: 300 MG, UNK
     Route: 048
     Dates: start: 20190531

REACTIONS (1)
  - Narcolepsy [Not Recovered/Not Resolved]

NARRATIVE: CASE EVENT DATE: 20190605
